FAERS Safety Report 4922425-8 (Version None)
Quarter: 2006Q1

REPORT INFORMATION
  Report Type: 
  Country: None (occurrence: None)
  Receive Date: 20060224
  Receipt Date: 20051013
  Transmission Date: 20060701
  Serious: Yes (Hospitalization, Other)
  Sender: FDA-Public Use
  Company Number: PR-MERCK-0510USA07173

PATIENT
  Sex: Female
  Weight: 50 kg

DRUGS (15)
  1. BEXTRA [Concomitant]
     Indication: HEADACHE
     Route: 065
     Dates: start: 19990101, end: 20040101
  2. BEXTRA [Concomitant]
     Indication: ARTHRITIS
     Route: 065
     Dates: start: 19990101, end: 20040101
  3. XANAX [Concomitant]
     Route: 065
     Dates: start: 20010101
  4. VIOXX [Suspect]
     Indication: ARTHRITIS
     Route: 048
     Dates: start: 19990101, end: 20030101
  5. NEURONTIN [Concomitant]
     Indication: CONVULSION
     Route: 065
     Dates: start: 19940101
  6. DILANTIN [Concomitant]
     Indication: CONVULSION
     Route: 065
     Dates: start: 19930101
  7. LAMICTAL [Concomitant]
     Indication: CONVULSION
     Route: 065
     Dates: start: 20010101
  8. LAMICTAL [Concomitant]
     Indication: AMNESIA
     Route: 065
     Dates: start: 20010101
  9. CALAN [Concomitant]
     Indication: HYPERTENSION
     Route: 065
     Dates: start: 19930101
  10. ATENOLOL [Concomitant]
     Indication: HYPERTENSION
     Route: 065
     Dates: start: 19960101
  11. PREMARIN [Concomitant]
     Indication: HORMONE REPLACEMENT THERAPY
     Route: 065
     Dates: start: 19840101
  12. FIORICET TABLETS [Concomitant]
     Indication: MIGRAINE
     Route: 065
     Dates: start: 19920101
  13. COUMADIN [Concomitant]
     Indication: ANTICOAGULANT THERAPY
     Route: 065
     Dates: start: 19990101
  14. CELEBREX [Concomitant]
     Indication: HEADACHE
     Route: 065
     Dates: start: 19990101
  15. CELEBREX [Concomitant]
     Indication: ARTHRITIS
     Route: 065
     Dates: start: 19990101

REACTIONS (16)
  - ABDOMINAL PAIN UPPER [None]
  - ANGINA PECTORIS [None]
  - ARRHYTHMIA [None]
  - CAECITIS [None]
  - DYSPEPSIA [None]
  - EPILEPSY [None]
  - GASTRIC DISORDER [None]
  - GASTRITIS [None]
  - HEADACHE [None]
  - HERNIA [None]
  - INTESTINAL OBSTRUCTION [None]
  - ISCHAEMIC STROKE [None]
  - PULMONARY EMBOLISM [None]
  - RENAL DISORDER [None]
  - TRANSIENT ISCHAEMIC ATTACK [None]
  - VOMITING [None]
